FAERS Safety Report 12887465 (Version 5)
Quarter: 2017Q1

REPORT INFORMATION
  Report Type: Spontaneous
  Country: US (occurrence: US)
  Receive Date: 20161026
  Receipt Date: 20170116
  Transmission Date: 20170428
  Serious: Yes (Life-Threatening, Other)
  Sender: FDA-Public Use
  Company Number: US-GILEAD-2016-0239996

PATIENT
  Age: 51 Year
  Sex: Male
  Weight: 81.36 kg

DRUGS (4)
  1. DESCOVY [Suspect]
     Active Substance: EMTRICITABINE\TENOFOVIR ALAFENAMIDE FUMARATE
     Indication: HIV INFECTION
     Dosage: 1 DF, QD
     Route: 048
     Dates: start: 20160928
  2. INSULIN [Concomitant]
     Active Substance: INSULIN NOS
     Dosage: 0.85 IU, Q1HR
  3. INSULIN [Concomitant]
     Active Substance: INSULIN NOS
     Indication: DIABETES MELLITUS
     Dosage: 1.15 IU, Q1HR
  4. PREZCOBIX [Concomitant]
     Active Substance: COBICISTAT\DARUNAVIR ETHANOLATE
     Dosage: UNK

REACTIONS (5)
  - Hypoglycaemia [Recovered/Resolved]
  - Mental status changes [Recovered/Resolved]
  - Hyperglycaemia [Not Recovered/Not Resolved]
  - Therapeutic response unexpected [Not Recovered/Not Resolved]
  - Depression [Recovering/Resolving]

NARRATIVE: CASE EVENT DATE: 2016
